FAERS Safety Report 22969822 (Version 2)
Quarter: 2023Q4

REPORT INFORMATION
  Report Type: Spontaneous
  Country: HU (occurrence: HU)
  Receive Date: 20230922
  Receipt Date: 20231123
  Transmission Date: 20240109
  Serious: Yes (Other)
  Sender: FDA-Public Use
  Company Number: HU-002147023-NVSC2023HU147853

PATIENT
  Age: 73 Year
  Sex: Male

DRUGS (5)
  1. METHOTREXATE [Suspect]
     Active Substance: METHOTREXATE
     Indication: Psoriasis
     Dosage: 15 MG, QW
     Dates: start: 20230613
  2. METHOTREXATE [Suspect]
     Active Substance: METHOTREXATE
     Dosage: 15 MG, QW
     Dates: start: 2017
  3. HYRIMOZ [Suspect]
     Active Substance: ADALIMUMAB-ADAZ
     Indication: Psoriatic arthropathy
     Dosage: UNK
     Dates: start: 20230104, end: 20230425
  4. HYRIMOZ [Suspect]
     Active Substance: ADALIMUMAB-ADAZ
     Indication: Arthropathy
     Dosage: 40 MG, Q2W
     Dates: start: 20230613, end: 20230613
  5. FOLIC ACID [Concomitant]
     Active Substance: FOLIC ACID
     Indication: Product used for unknown indication
     Dosage: 5 DF, QW
     Dates: start: 2017

REACTIONS (3)
  - Psoriatic arthropathy [Recovering/Resolving]
  - Lung neoplasm malignant [Unknown]
  - Arthropathy [Recovering/Resolving]

NARRATIVE: CASE EVENT DATE: 20230425
